FAERS Safety Report 17649023 (Version 4)
Quarter: 2023Q2

REPORT INFORMATION
  Report Type: Spontaneous
  Country: US (occurrence: US)
  Receive Date: 20200408
  Receipt Date: 20230609
  Transmission Date: 20230722
  Serious: No
  Sender: FDA-Public Use
  Company Number: US-PFIZER INC-2019533230

PATIENT
  Age: 57 Year
  Sex: Female

DRUGS (11)
  1. DOCETAXEL [Suspect]
     Active Substance: DOCETAXEL
     Indication: Triple positive breast cancer
     Dosage: 140 MG, CYCLIC (EVERY 3 WEEKS FOR 04 CYCLES)
     Dates: start: 20131106, end: 20140108
  2. TAXOTERE [Suspect]
     Active Substance: DOCETAXEL
     Indication: Triple positive breast cancer
     Dosage: 140 MG, CYCLIC (EVERY 3 WEEKS FOR 04 CYCLES)
     Dates: start: 20131106, end: 20140108
  3. ROSUVASTATIN [Concomitant]
     Active Substance: ROSUVASTATIN
     Dosage: UNK
     Dates: start: 2000
  4. LEVOTHYROXINE [Concomitant]
     Active Substance: LEVOTHYROXINE
     Dosage: UNK
     Dates: start: 2000
  5. TRAZODONE [Concomitant]
     Active Substance: TRAZODONE HYDROCHLORIDE
     Dosage: UNK
     Dates: start: 2000
  6. LISINOPRIL [Concomitant]
     Active Substance: LISINOPRIL
     Dosage: UNK
     Dates: start: 2000
  7. ANASTROZOLE [Concomitant]
     Active Substance: ANASTROZOLE
     Dosage: UNK
     Dates: start: 2013
  8. EXEMESTANE [Concomitant]
     Active Substance: EXEMESTANE
     Dosage: UNK
  9. LETROZOLE [Concomitant]
     Active Substance: LETROZOLE
     Dosage: UNK
  10. PARAPLATIN [Concomitant]
     Active Substance: CARBOPLATIN
     Indication: Chemotherapy
     Dosage: UNK
  11. HERCEPTIN [Concomitant]
     Active Substance: TRASTUZUMAB
     Indication: Chemotherapy
     Dosage: UNK

REACTIONS (5)
  - Alopecia [Not Recovered/Not Resolved]
  - Hair texture abnormal [Not Recovered/Not Resolved]
  - Hair disorder [Not Recovered/Not Resolved]
  - Hair colour changes [Not Recovered/Not Resolved]
  - Madarosis [Not Recovered/Not Resolved]

NARRATIVE: CASE EVENT DATE: 20140908
